FAERS Safety Report 10210060 (Version 1)
Quarter: 2014Q2

REPORT INFORMATION
  Report Type: Spontaneous
  Country: BE (occurrence: BE)
  Receive Date: 20140602
  Receipt Date: 20140602
  Transmission Date: 20141212
  Serious: Yes (Life-Threatening, Hospitalization, Disabling, Other)
  Sender: FDA-Public Use
  Company Number: BE-009507513-1406BEL000295

PATIENT
  Age: 68 Year
  Sex: Female
  Weight: 130 kg

DRUGS (20)
  1. INEGY [Suspect]
     Indication: DYSLIPIDAEMIA
     Dosage: DAILY
     Route: 048
     Dates: start: 2012
  2. DIETARY SUPPLEMENT (UNSPECIFIED) [Interacting]
     Indication: OSTEOARTHRITIS
     Dosage: 2 DF, BID
     Route: 048
     Dates: start: 20140318, end: 20140322
  3. KREDEX [Concomitant]
     Indication: HYPERTENSION
     Dosage: FOR MORE THAN 2 YEARS
     Route: 048
  4. MONTELUKAST MSD [Concomitant]
     Indication: ASTHMA
     Dosage: FOR OVER 9 MONTHS
     Route: 048
  5. BURINEX [Concomitant]
     Indication: POLYURIA
     Dosage: 1 MG, QD
     Route: 048
     Dates: start: 201401
  6. BURINEX [Concomitant]
     Indication: RENAL FAILURE CHRONIC
  7. FOSAVANCE [Concomitant]
     Indication: OSTEOPOROSIS
     Dosage: 70 MG, QW
     Route: 048
  8. SEROXAT [Concomitant]
     Dosage: COUPLE OF MONTHS, 20 MG QOD, PRN
     Route: 048
  9. TRADONAL [Concomitant]
     Indication: ARTHRALGIA
     Dosage: 50 MG QD, PRN
     Route: 048
  10. INUVAIR [Concomitant]
     Indication: ASTHMA
     Dosage: ABOUT 2 MONTHS
     Route: 055
  11. SUPRADYN VITAL 50 PLUS [Concomitant]
     Dosage: 1 DF, QD
     Route: 048
     Dates: start: 201212
  12. KAYEXALATE CA [Concomitant]
     Dosage: 2 DF, QD
     Route: 048
  13. LANTUS [Concomitant]
     Indication: DIABETES MELLITUS
     Dosage: SEVERAL YEARS
     Route: 058
  14. NOVORAPID [Concomitant]
     Indication: DIABETES MELLITUS
     Dosage: SEVERAL YEARS
     Route: 058
  15. NOVORAPID [Concomitant]
     Dosage: SEVERAL YEARS; AT NOON
     Route: 058
  16. NOVORAPID [Concomitant]
     Dosage: SEVERAL YEARS
     Route: 058
  17. SANDOZ ALLOPURINOL [Concomitant]
     Dosage: UNK
     Route: 048
  18. FEMARA [Concomitant]
     Indication: BREAST CANCER
     Dosage: UNK
     Route: 048
     Dates: start: 20120930
  19. ATACAND [Concomitant]
     Indication: HYPERTENSION
     Dosage: UNK
     Route: 048
     Dates: start: 2014
  20. FLECAINIDE ACETATE [Concomitant]
     Indication: ATRIAL FIBRILLATION
     Dosage: UNK
     Dates: start: 2013

REACTIONS (6)
  - Renal failure acute [Recovering/Resolving]
  - Rhabdomyolysis [Recovering/Resolving]
  - Drug interaction [Recovering/Resolving]
  - Asthenia [Recovering/Resolving]
  - Asthenia [Recovering/Resolving]
  - Activities of daily living impaired [Recovering/Resolving]
